FAERS Safety Report 4653189-3 (Version None)
Quarter: 2005Q2

REPORT INFORMATION
  Report Type: 
  Country: None (occurrence: None)
  Receive Date: 20050503
  Receipt Date: 20050418
  Transmission Date: 20051028
  Serious: Yes (Death, Hospitalization)
  Sender: FDA-Public Use
  Company Number: A02200501070

PATIENT
  Age: 59 Year
  Sex: Male

DRUGS (6)
  1. PLAVIX [Suspect]
     Dosage: 75 MG OD ORAL
     Route: 048
     Dates: end: 20050321
  2. KARDEGIC - (ACETYLSALICYLATE LYSINE) - POWDER - 75 MG [Suspect]
     Dosage: 75 MG OD ORAL
     Route: 048
     Dates: end: 20050321
  3. SECTRAL [Concomitant]
  4. ATORVASTATIN CALCIUM [Concomitant]
  5. QUINAPRIL HCL [Concomitant]
  6. OMEPRAZOLE [Concomitant]

REACTIONS (9)
  - ATRIOVENTRICULAR BLOCK [None]
  - CARDIAC ARREST [None]
  - CIRCULATORY COLLAPSE [None]
  - EJECTION FRACTION DECREASED [None]
  - HAEMODYNAMIC INSTABILITY [None]
  - LOW CARDIAC OUTPUT SYNDROME [None]
  - MYOCARDIAL INFARCTION [None]
  - REBOUND EFFECT [None]
  - THERAPY NON-RESPONDER [None]
